FAERS Safety Report 6324583-X (Version None)
Quarter: 2009Q3

REPORT INFORMATION
  Report Type: 
  Country: None (occurrence: None)
  Receive Date: 20090824
  Receipt Date: 20090429
  Transmission Date: 20100115
  Serious: No
  Sender: FDA-Public Use
  Company Number: US-ABBOTT-09P-163-0568492-00

PATIENT
  Sex: Male

DRUGS (7)
  1. NIASPAN [Suspect]
     Indication: HIGH DENSITY LIPOPROTEIN DECREASED
     Dosage: AT NIGHT
     Dates: start: 20090410
  2. LIPITOR [Concomitant]
     Indication: DRUG USE FOR UNKNOWN INDICATION
  3. COUMADIN [Concomitant]
     Indication: DRUG USE FOR UNKNOWN INDICATION
  4. NORVASC [Concomitant]
     Indication: DRUG USE FOR UNKNOWN INDICATION
  5. IRON [Concomitant]
     Indication: DRUG USE FOR UNKNOWN INDICATION
     Dosage: PILL FORM
  6. GLUCOSAMINE/CHONDROITIN [Concomitant]
     Indication: DRUG USE FOR UNKNOWN INDICATION
  7. VITAMIN FOR RETINA [Concomitant]
     Indication: DRUG USE FOR UNKNOWN INDICATION

REACTIONS (2)
  - HOT FLUSH [None]
  - PRURITUS [None]
